FAERS Safety Report 12384408 (Version 1)
Quarter: 2016Q2

REPORT INFORMATION
  Report Type: Spontaneous
  Country: US (occurrence: None)
  Receive Date: 20160518
  Receipt Date: 20160518
  Transmission Date: 20160815
  Serious: Yes (Hospitalization, Other)
  Sender: FDA-Public Use
  Company Number: None

PATIENT
  Age: 44 Year
  Sex: Female
  Weight: 65.32 kg

DRUGS (1)
  1. LEVOFLOXACIN , 750MG [Suspect]
     Active Substance: LEVOFLOXACIN
     Indication: PNEUMONIA
     Dosage: 8 CAPSULES
     Dates: start: 20160419, end: 20160423

REACTIONS (7)
  - Dizziness [None]
  - Electrocardiogram QT prolonged [None]
  - Extrasystoles [None]
  - Arrhythmia [None]
  - Tachycardia [None]
  - Rash [None]
  - Ventricular extrasystoles [None]

NARRATIVE: CASE EVENT DATE: 20160423
